FAERS Safety Report 4650718-0 (Version None)
Quarter: 2005Q2

REPORT INFORMATION
  Report Type: 
  Country: None (occurrence: None)
  Receive Date: 20050429
  Receipt Date: 20050429
  Transmission Date: 20051028
  Serious: Yes (Hospitalization, Disabling)
  Sender: FDA-Public Use
  Company Number: None

PATIENT
  Age: 49 Year
  Sex: Male
  Weight: 95.2554 kg

DRUGS (1)
  1. CRESTOR [Suspect]
     Indication: BLOOD CHOLESTEROL
     Dosage: 1 DAILY

REACTIONS (5)
  - ASTHENIA [None]
  - CONFUSIONAL STATE [None]
  - HEADACHE [None]
  - IMPAIRED WORK ABILITY [None]
  - VOMITING [None]
